FAERS Safety Report 10555508 (Version 1)
Quarter: 2014Q4

REPORT INFORMATION
  Report Type: Spontaneous
  Country: US (occurrence: US)
  Receive Date: 20141030
  Receipt Date: 20141030
  Transmission Date: 20150529
  Serious: No
  Sender: FDA-Public Use
  Company Number: US-009507513-1410USA012214

PATIENT
  Sex: Female

DRUGS (1)
  1. CLARITIN [Suspect]
     Active Substance: LORATADINE
     Indication: EAR DISCOMFORT
     Dosage: UNK, UNKNOWN
     Route: 048

REACTIONS (3)
  - Somnolence [Unknown]
  - Off label use [Unknown]
  - Drug prescribing error [Unknown]
